FAERS Safety Report 8866195 (Version 1)
Quarter: 2012Q4

REPORT INFORMATION
  Report Type: 
  Country: GB (occurrence: GB)
  Receive Date: 20121025
  Receipt Date: 20121025
  Transmission Date: 20130627
  Serious: Yes (Other)
  Sender: FDA-Public Use
  Company Number: PHHO2012GB011052

PATIENT
  Age: 46 Year
  Sex: Male
  Weight: 98.95 kg

DRUGS (3)
  1. FTY 720 [Suspect]
     Indication: PRIMARY PROGRESSIVE MULTIPLE SCLEROSIS
     Dosage: 0.5 mg, QD
     Route: 048
     Dates: start: 20110727
  2. MIRTAZAPINE [Concomitant]
     Indication: DEPRESSION
     Dosage: 45 mg, daily
     Route: 048
     Dates: start: 20060101
  3. AMANTADINE [Concomitant]
     Dosage: 200 mg, BID
     Dates: start: 20090101, end: 20110804

REACTIONS (1)
  - Fibrous histiocytoma [Recovered/Resolved]
